FAERS Safety Report 10497065 (Version 1)
Quarter: 2014Q3

REPORT INFORMATION
  Report Type: Spontaneous
  Country: US (occurrence: None)
  Receive Date: 20140815
  Receipt Date: 20140815
  Transmission Date: 20150326
  Serious: Yes (Other)
  Sender: FDA-Public Use
  Company Number: ADR-2014-00786

PATIENT
  Age: 17 Year
  Sex: Female

DRUGS (1)
  1. BACLOFEN INTRATHECAL [Suspect]
     Active Substance: BACLOFEN
     Indication: MUSCLE SPASTICITY
     Dosage: OR SOMETHING #

REACTIONS (7)
  - Vomiting [None]
  - Overdose [None]
  - Sedation [None]
  - Unevaluable event [None]
  - Altered state of consciousness [None]
  - Unresponsive to stimuli [None]
  - Retching [None]
